FAERS Safety Report 20918625 (Version 1)
Quarter: 2022Q2

REPORT INFORMATION
  Report Type: Spontaneous
  Country: US (occurrence: US)
  Receive Date: 20220606
  Receipt Date: 20220606
  Transmission Date: 20220721
  Serious: No
  Sender: FDA-Public Use
  Company Number: US-TERSERA THERAPEUTICS LLC-2022TRS000677

PATIENT

DRUGS (3)
  1. ZOLADEX [Suspect]
     Active Substance: GOSERELIN ACETATE
     Indication: Triple positive breast cancer
     Dosage: 3.6 MG, Q28 DAYS
     Route: 065
     Dates: start: 2020
  2. ZOLADEX [Suspect]
     Active Substance: GOSERELIN ACETATE
     Indication: Triple positive breast cancer
     Dosage: UNK
     Route: 065
  3. UNSPECIFIED INGREDIENT [Concomitant]
     Active Substance: UNSPECIFIED INGREDIENT
     Indication: Product used for unknown indication
     Dosage: UNK
     Route: 065

REACTIONS (12)
  - Hypoacusis [Unknown]
  - Metabolic disorder [Unknown]
  - Arthralgia [Unknown]
  - Vision blurred [Unknown]
  - Lethargy [Unknown]
  - Hot flush [Unknown]
  - Fatigue [Unknown]
  - Insomnia [Unknown]
  - Somnolence [Unknown]
  - Injection site haemorrhage [Unknown]
  - Product administration error [Unknown]
  - Inappropriate schedule of product administration [Unknown]

NARRATIVE: CASE EVENT DATE: 20220211
